FAERS Safety Report 8707961 (Version 4)
Quarter: 2012Q4

REPORT INFORMATION
  Report Type: 
  Country: JP (occurrence: JP)
  Receive Date: 20120806
  Receipt Date: 20120906
  Transmission Date: 20130627
  Serious: Yes (Death)
  Sender: FDA-Public Use
  Company Number: JP-ELI_LILLY_AND_COMPANY-JP201208000468

PATIENT
  Age: 70 Year
  Sex: Male
  Weight: 86 kg

DRUGS (5)
  1. ALIMTA [Suspect]
     Indication: LUNG ADENOCARCINOMA STAGE IV
     Dosage: 300 mg, UNK
     Route: 042
     Dates: start: 20110830
  2. METHYCOBAL [Concomitant]
     Dosage: 1 mg, UNK
     Route: 030
     Dates: start: 20110809
  3. PANVITAN [Concomitant]
     Dosage: 1 g, UNK
     Route: 048
     Dates: start: 20110830
  4. GRANISETRON [Concomitant]
     Indication: PROPHYLAXIS OF NAUSEA AND VOMITING
     Dosage: 3 mg, UNK
     Route: 042
     Dates: start: 20110830
  5. DEXART [Concomitant]
     Indication: PROPHYLAXIS OF NAUSEA AND VOMITING
     Dosage: 6.6 mg, UNK
     Route: 042
     Dates: start: 20110830

REACTIONS (6)
  - Bone marrow failure [Fatal]
  - General physical health deterioration [Fatal]
  - Febrile neutropenia [Fatal]
  - Neoplasm progression [Fatal]
  - Hypophagia [Unknown]
  - Pruritus [Unknown]
